FAERS Safety Report 20079405 (Version 3)
Quarter: 2022Q2

REPORT INFORMATION
  Report Type: Spontaneous
  Country: US (occurrence: US)
  Receive Date: 20211117
  Receipt Date: 20220513
  Transmission Date: 20220721
  Serious: No
  Sender: FDA-Public Use
  Company Number: US-SA-SAC20211112000161

PATIENT
  Age: 53 Year
  Sex: Female

DRUGS (3)
  1. DUPIXENT [Suspect]
     Active Substance: DUPILUMAB
     Indication: Eczema
     Dosage: 300 MG
     Route: 058
     Dates: start: 202111
  2. DUPIXENT [Suspect]
     Active Substance: DUPILUMAB
     Indication: Dermatitis atopic
  3. NUCALA [Concomitant]
     Active Substance: MEPOLIZUMAB
     Indication: Asthma
     Dosage: UNK
     Dates: start: 20200408

REACTIONS (21)
  - Skin infection [Unknown]
  - Middle insomnia [Unknown]
  - Peripheral swelling [Unknown]
  - Pain [Unknown]
  - Erythema [Unknown]
  - Skin warm [Unknown]
  - Skin mass [Unknown]
  - Skin induration [Unknown]
  - Pain of skin [Unknown]
  - Dry skin [Unknown]
  - Skin discolouration [Unknown]
  - Asthma [Unknown]
  - Hyperventilation [Unknown]
  - COVID-19 [Unknown]
  - Erythema [Unknown]
  - Eczema [Unknown]
  - Drug ineffective [Unknown]
  - Food poisoning [Unknown]
  - Diarrhoea [Unknown]
  - Nausea [Unknown]
  - Product dose omission issue [Unknown]

NARRATIVE: CASE EVENT DATE: 20200301
